FAERS Safety Report 7776855-X (Version None)
Quarter: 2011Q3

REPORT INFORMATION
  Report Type: 
  Country: None (occurrence: None)
  Receive Date: 20110926
  Receipt Date: 20110913
  Transmission Date: 20111222
  Serious: Yes (Other)
  Sender: FDA-Public Use
  Company Number: JP-ELI_LILLY_AND_COMPANY-JP201108009149

PATIENT
  Sex: Female
  Weight: 43.8 kg

DRUGS (11)
  1. EVISTA [Suspect]
     Indication: OSTEOPOROSIS
     Dosage: 60 MG, 3/W
     Route: 048
     Dates: start: 20110308, end: 20110823
  2. CALCIUM CARBONATE [Concomitant]
     Indication: HYPERPHOSPHATAEMIA
     Dosage: 500 MG, TID
     Route: 048
  3. CINACALCET HYDROCHLORIDE [Concomitant]
     Indication: HYPERPARATHYROIDISM SECONDARY
     Dosage: 25 MG, QD
     Route: 048
     Dates: start: 20100906
  4. RENAGEL [Concomitant]
     Indication: HYPERPHOSPHATAEMIA
     Dosage: UNK
     Route: 048
  5. GLAKAY [Concomitant]
     Indication: OSTEOPOROSIS
     Dosage: 15 MG, BID
  6. CLARITIN [Concomitant]
     Indication: RHINITIS ALLERGIC
     Dosage: 10 MG, QD
     Route: 048
     Dates: start: 20110301
  7. SEFTAC [Concomitant]
     Indication: STOMATITIS
     Dosage: 50 MG, QD
     Route: 048
  8. VITAMEDIN [Concomitant]
     Indication: NEUROPATHY PERIPHERAL
     Dosage: 25 MG, BID
     Route: 048
  9. FOSRENOL [Concomitant]
     Indication: HYPERPHOSPHATAEMIA
     Dosage: 500 MG, TID
     Route: 048
  10. ASPIRIN [Concomitant]
     Indication: CAROTID ARTERIOSCLEROSIS
     Dosage: 100 MG, QD
     Route: 048
  11. JUVELA N [Concomitant]
     Indication: NEUROPATHY PERIPHERAL
     Dosage: 100 MG, BID
     Route: 048

REACTIONS (2)
  - INAPPROPRIATE SCHEDULE OF DRUG ADMINISTRATION [None]
  - RETINAL ARTERY OCCLUSION [None]
